FAERS Safety Report 19292610 (Version 3)
Quarter: 2023Q4

REPORT INFORMATION
  Report Type: Spontaneous
  Country: AU (occurrence: AU)
  Receive Date: 20210524
  Receipt Date: 20231124
  Transmission Date: 20240109
  Serious: Yes (Other)
  Sender: FDA-Public Use
  Company Number: AU-SUN PHARMACEUTICAL INDUSTRIES LTD-2021R1-296853

PATIENT
  Age: 58 Year
  Sex: Female
  Weight: 49 kg

DRUGS (4)
  1. ILUMYA [Suspect]
     Active Substance: TILDRAKIZUMAB-ASMN
     Indication: Psoriasis
     Dosage: 100 MILLIGRAM
     Route: 065
     Dates: start: 20210329, end: 20210421
  2. ILUMYA [Suspect]
     Active Substance: TILDRAKIZUMAB-ASMN
     Dosage: 100 MILLIGRAM/ WEEK 4
     Route: 065
     Dates: start: 20210421
  3. Fish oil tablet [Concomitant]
     Indication: Product used for unknown indication
     Dosage: UNK
     Route: 065
     Dates: end: 20210421
  4. VITAMIN B3 [Concomitant]
     Active Substance: NIACIN
     Indication: Product used for unknown indication
     Dosage: UNK
     Route: 065
     Dates: end: 20210421

REACTIONS (1)
  - Herpes zoster [Recovered/Resolved]

NARRATIVE: CASE EVENT DATE: 20210421
